FAERS Safety Report 9852820 (Version 1)
Quarter: 2014Q1

REPORT INFORMATION
  Report Type: Spontaneous
  Country: US (occurrence: US)
  Receive Date: 20140129
  Receipt Date: 20140129
  Transmission Date: 20141002
  Serious: No
  Sender: FDA-Public Use
  Company Number: US-B.I. PHARMACEUTICALS,INC./RIDGEFIELD-2014-BI-02470BP

PATIENT
  Age: 74 Year
  Sex: Female

DRUGS (1)
  1. COMBIVENT [Suspect]
     Indication: BRONCHITIS
     Dosage: STRENGTH: 20 MCG / 100 MCG; DAILY DOSE: 160MCG/800MCG
     Route: 055
     Dates: start: 20140117

REACTIONS (2)
  - Prescribed overdose [Unknown]
  - Off label use [Unknown]
